FAERS Safety Report 9904291 (Version 1)
Quarter: 2014Q1

REPORT INFORMATION
  Report Type: Spontaneous
  Country: US (occurrence: US)
  Receive Date: 20140218
  Receipt Date: 20140218
  Transmission Date: 20141002
  Serious: No
  Sender: FDA-Public Use
  Company Number: US-BAYER-2014-025029

PATIENT
  Sex: Female
  Weight: 113.38 kg

DRUGS (10)
  1. BETASERON [Suspect]
     Dosage: 0.25 MG, QOD
     Route: 058
  2. NEURONTIN [Concomitant]
     Dosage: 300 MG, UNK
  3. CLONAZEPAM [Concomitant]
     Dosage: 1 MG, UNK
  4. OMEPRAZOLE [Concomitant]
     Dosage: 20 MG, UNK
  5. PRAVASTATIN [Concomitant]
     Dosage: 20 MG, UNK
  6. PROPRANOLOL [Concomitant]
     Dosage: 120 MG, UNK
  7. HYDROCHLOROTHIAZID [Concomitant]
     Dosage: 12.5 MG, UNK
  8. TRAZODONE HYDROCHLORIDE [Concomitant]
  9. TYLENOL [PARACETAMOL] [Concomitant]
     Dosage: 325 MG, UNK
  10. LEVOXYL [Concomitant]
     Dosage: 100 ?G, UNK

REACTIONS (2)
  - Memory impairment [Unknown]
  - Influenza like illness [Unknown]
